FAERS Safety Report 21655549 (Version 1)
Quarter: 2022Q4

REPORT INFORMATION
  Report Type: Spontaneous
  Country: US (occurrence: None)
  Receive Date: 20221125
  Receipt Date: 20221125
  Transmission Date: 20230113
  Serious: No
  Sender: FDA-Public Use
  Company Number: None

PATIENT
  Sex: Female
  Weight: 44.91 kg

DRUGS (15)
  1. EVEROLIMUS [Suspect]
     Active Substance: EVEROLIMUS
     Indication: Breast cancer female
     Dosage: 10 MG DAILY ORAL
     Route: 048
  2. CALCIUM CARBONATE\VITAMIN D [Concomitant]
     Active Substance: CALCIUM CARBONATE\VITAMIN D
  3. DICLOFENAC [Concomitant]
     Active Substance: DICLOFENAC
  4. DOCUSATE [Concomitant]
     Active Substance: DOCUSATE
  5. FENTANYL [Concomitant]
     Active Substance: FENTANYL
  6. LACTOBACILLUS ACIDOPHILUS [Concomitant]
     Active Substance: LACTOBACILLUS ACIDOPHILUS
  7. LACTULOSE [Concomitant]
     Active Substance: LACTULOSE
  8. LETROZOLE [Concomitant]
     Active Substance: LETROZOLE
  9. MAGNESIUM OXIDE [Concomitant]
     Active Substance: MAGNESIUM OXIDE
  10. CANNABIS SATIVA SUBSP. INDICA TOP [Concomitant]
     Active Substance: CANNABIS SATIVA SUBSP. INDICA TOP
  11. MELATONIN [Concomitant]
     Active Substance: MELATONIN
  12. NYSTATIN [Concomitant]
     Active Substance: NYSTATIN
  13. OXYCODONE [Concomitant]
     Active Substance: OXYCODONE
  14. XARELTO [Concomitant]
     Active Substance: RIVAROXABAN
  15. ZINC 15 [Concomitant]

REACTIONS (1)
  - Death [None]
